FAERS Safety Report 7831026-3 (Version None)
Quarter: 2011Q4

REPORT INFORMATION
  Report Type: 
  Country: None (occurrence: None)
  Receive Date: 20111021
  Receipt Date: 20111010
  Transmission Date: 20120403
  Serious: Yes (Hospitalization, Other)
  Sender: FDA-Public Use
  Company Number: PHEH2011US00768

PATIENT
  Sex: Male
  Weight: 76.3 kg

DRUGS (13)
  1. HYDROCORT [Concomitant]
  2. VITAMIN D [Concomitant]
  3. ARICEPT [Concomitant]
  4. CHROMIUM CHLORIDE [Concomitant]
  5. METFORMIN HCL [Concomitant]
  6. ASPIRIN [Concomitant]
  7. RECLAST [Suspect]
     Indication: OSTEOPOROSIS
     Dosage: 5 MG, UNK
     Route: 042
     Dates: start: 20110802
  8. FISH OIL [Concomitant]
  9. LEVOXYL [Concomitant]
  10. LOVASTATIN [Concomitant]
  11. ZOMETA [Suspect]
     Indication: OSTEOPOROSIS
     Dosage: UNK UKN, UNK
     Route: 042
     Dates: start: 20110802
  12. EFFEXOR [Concomitant]
  13. CALCIUM CARBONATE [Concomitant]

REACTIONS (8)
  - ATELECTASIS [None]
  - SPEECH DISORDER [None]
  - LETHARGY [None]
  - GAIT DISTURBANCE [None]
  - PNEUMONIA [None]
  - MENTAL DISORDER [None]
  - FEELING ABNORMAL [None]
  - UNRESPONSIVE TO STIMULI [None]
